FAERS Safety Report 9232863 (Version 4)
Quarter: 2013Q3

REPORT INFORMATION
  Report Type: Spontaneous
  Country: CA (occurrence: None)
  Receive Date: 20130412
  Receipt Date: 20130730
  Transmission Date: 20140515
  Serious: Yes (Hospitalization, Other)
  Sender: FDA-Public Use
  Company Number: ADR-2013-00622

PATIENT
  Sex: Male

DRUGS (1)
  1. LIORESAL [Suspect]
     Dosage: 985 MCG/DAY

REACTIONS (19)
  - Medical device complication [None]
  - Drug withdrawal syndrome [None]
  - Nasopharyngitis [None]
  - Eye movement disorder [None]
  - Muscle rigidity [None]
  - Pain [None]
  - Hyperhidrosis [None]
  - Tremor [None]
  - Muscle spasticity [None]
  - Discomfort [None]
  - Drug administration error [None]
  - Irritability [None]
  - Flushing [None]
  - Heart rate increased [None]
  - Respiratory rate increased [None]
  - Malaise [None]
  - Insomnia [None]
  - Crying [None]
  - Cold sweat [None]
